FAERS Safety Report 13323099 (Version 5)
Quarter: 2020Q1

REPORT INFORMATION
  Report Type: Spontaneous
  Country: US (occurrence: US)
  Receive Date: 20170310
  Receipt Date: 20200212
  Transmission Date: 20200409
  Serious: Yes (Other)
  Sender: FDA-Public Use
  Company Number: US-PFIZER INC-2017104154

PATIENT
  Age: 65 Year
  Sex: Female
  Weight: 68.27 kg

DRUGS (23)
  1. LYRICA [Suspect]
     Active Substance: PREGABALIN
     Indication: HERPES ZOSTER
     Dosage: 150 MG, 2X/DAY (75 MG, CAPSULE, ORALLY, 2 IN THE MORNING AND 2 AT NIGHT)
     Route: 048
  2. COMBIGAN [Concomitant]
     Active Substance: BRIMONIDINE TARTRATE\TIMOLOL MALEATE
     Indication: GLAUCOMA
     Dosage: 2 GTT, 2X/DAY (ONE DROP EACH EYE TWICE PER DAY)
  3. ESTRADIOL. [Concomitant]
     Active Substance: ESTRADIOL
     Indication: SKIN ATROPHY
     Dosage: 1 %, WEEKLY
     Route: 067
  4. NAPROXEN. [Concomitant]
     Active Substance: NAPROXEN
     Indication: OSTEOARTHRITIS
     Dosage: UNK, 1X/DAY
     Route: 048
  5. LYRICA [Suspect]
     Active Substance: PREGABALIN
     Indication: NEURALGIA
     Dosage: 75 MG, 2X/DAY[75MG IN THE MORNING AND 75 MG AT NIGHT]
     Route: 048
     Dates: start: 20120828
  6. LYRICA [Suspect]
     Active Substance: PREGABALIN
     Indication: FIBROMYALGIA
     Dosage: 75 MG, 2X/DAY
     Dates: start: 2007
  7. LYRICA [Suspect]
     Active Substance: PREGABALIN
     Indication: MYALGIA
     Dosage: 75 MG, 2X/DAY (75 MG CAPSULE IN THE MORNING, 75 MG CAPSULE AT NIGHT)
     Dates: start: 2009
  8. ALENDRONATE [Concomitant]
     Active Substance: ALENDRONATE SODIUM
     Indication: OSTEOARTHRITIS
     Dosage: 70 MG, WEEKLY
     Route: 048
  9. DIAZEPAM. [Concomitant]
     Active Substance: DIAZEPAM
     Dosage: 0.5 DF, 1X/DAY(HALF OF A TABLET PER DAY AT NIGHT BY MOUTH)
     Route: 048
  10. SINGULAIR [Concomitant]
     Active Substance: MONTELUKAST SODIUM
     Indication: HYPERSENSITIVITY
     Dosage: 10 MG, 1X/DAY
     Route: 048
     Dates: start: 2000
  11. LYRICA [Suspect]
     Active Substance: PREGABALIN
     Indication: BACK PAIN
  12. ESTRADIOL. [Concomitant]
     Active Substance: ESTRADIOL
     Indication: PRURITUS
  13. MONTELUKAST SODIUM. [Concomitant]
     Active Substance: MONTELUKAST SODIUM
     Indication: HYPERSENSITIVITY
     Dosage: 10 MG, UNK
  14. NASONEX [Concomitant]
     Active Substance: MOMETASONE FUROATE
     Indication: HYPERSENSITIVITY
     Dosage: UNK, 1X/DAY(2 SPRAYS TO EACH NOSTRIL ONCE A DAY)
     Route: 045
     Dates: start: 2000
  15. DESITIN [ZINC OXIDE] [Concomitant]
     Indication: RASH
     Dosage: UNK
  16. NASONEX [Concomitant]
     Active Substance: MOMETASONE FUROATE
     Dosage: UNK
     Dates: start: 2000
  17. PROBIOTICS [Concomitant]
     Active Substance: PROBIOTICS NOS
     Dosage: UNK
  18. NAPROXEN. [Concomitant]
     Active Substance: NAPROXEN
     Dosage: UNK
     Dates: start: 2010
  19. MONTELUKAST SODIUM. [Concomitant]
     Active Substance: MONTELUKAST SODIUM
     Dosage: UNK
     Dates: start: 2000
  20. OMEPRAZON [Concomitant]
     Active Substance: OMEPRAZOLE
     Dosage: UNK
     Dates: start: 2010
  21. PREPARATION H MAXIMUM STRENGTH CREAM [Concomitant]
     Indication: HAEMORRHOIDS
     Dosage: UNK , DAILY(OINTMENT APPLIED EVERYDAY)
  22. DIAZEPAM. [Concomitant]
     Active Substance: DIAZEPAM
     Indication: MUSCLE RELAXANT THERAPY
     Dosage: 10 MG, MONTHLY(15, 10 MG TABLETS PER MONTH)
  23. ESTRADIOL. [Concomitant]
     Active Substance: ESTRADIOL
     Indication: SKIN BURNING SENSATION

REACTIONS (7)
  - Abdominal distension [Not Recovered/Not Resolved]
  - Vision blurred [Not Recovered/Not Resolved]
  - Constipation [Not Recovered/Not Resolved]
  - Condition aggravated [Not Recovered/Not Resolved]
  - Open angle glaucoma [Not Recovered/Not Resolved]
  - Weight increased [Not Recovered/Not Resolved]
  - Dry eye [Not Recovered/Not Resolved]

NARRATIVE: CASE EVENT DATE: 2014
